FAERS Safety Report 8160135-7 (Version None)
Quarter: 2012Q1

REPORT INFORMATION
  Report Type: 
  Country: None (occurrence: None)
  Receive Date: 20120223
  Receipt Date: 20120217
  Transmission Date: 20120608
  Serious: Yes (Other)
  Sender: FDA-Public Use
  Company Number: US-ELI_LILLY_AND_COMPANY-US201202005837

PATIENT
  Age: 42 Year
  Sex: Female
  Weight: 135 kg

DRUGS (3)
  1. ADCIRCA [Suspect]
  2. DIURETICS [Concomitant]
  3. REMODULIN [Concomitant]
     Dosage: 2.5 DF, UNK
     Route: 042
     Dates: start: 20110105

REACTIONS (3)
  - TRANSIENT ISCHAEMIC ATTACK [None]
  - VISION BLURRED [None]
  - BACK PAIN [None]
